FAERS Safety Report 5994929-0 (Version None)
Quarter: 2008Q4

REPORT INFORMATION
  Report Type: 
  Country: None (occurrence: None)
  Receive Date: 20081212
  Receipt Date: 20080918
  Transmission Date: 20090506
  Serious: No
  Sender: FDA-Public Use
  Company Number: US-ABBOTT-08P-163-0477058-00

PATIENT
  Sex: Female
  Weight: 70.37 kg

DRUGS (2)
  1. HUMIRA [Suspect]
     Indication: SKIN DISORDER
     Dates: start: 19960101, end: 20080701
  2. HYALURONIC ACID [Concomitant]
     Indication: ILL-DEFINED DISORDER
     Route: 050

REACTIONS (4)
  - EYE IRRITATION [None]
  - EYE PRURITUS [None]
  - PETECHIAE [None]
  - TOOTH LOSS [None]
